FAERS Safety Report 6471698-1 (Version None)
Quarter: 2009Q4

REPORT INFORMATION
  Report Type: 
  Country: None (occurrence: None)
  Receive Date: 20091203
  Receipt Date: 20080421
  Transmission Date: 20100525
  Serious: Yes (Hospitalization)
  Sender: FDA-Public Use
  Company Number: DE-ELI_LILLY_AND_COMPANY-DE200803001750

PATIENT
  Sex: Male
  Weight: 82 kg

DRUGS (4)
  1. ALIMTA [Suspect]
     Indication: BRONCHIAL CARCINOMA
     Dosage: 960 MG, UNKNOWN
     Dates: start: 20080227
  2. VITAMIN B-12 [Concomitant]
     Indication: PROPHYLAXIS
     Dosage: 1200 UG, UNKNOWN
     Dates: start: 20080220
  3. FOLIC ACID [Concomitant]
     Indication: PROPHYLAXIS
     Dosage: 0.4 MG, UNKNOWN
     Dates: start: 20080220
  4. DEXAMETHASONE TAB [Concomitant]
     Indication: PROPHYLAXIS
     Dosage: 8 MG, UNKNOWN
     Dates: start: 20080226, end: 20080228

REACTIONS (2)
  - BLOOD PRESSURE DECREASED [None]
  - TRACHEOBRONCHITIS [None]
